FAERS Safety Report 7036065-0 (Version None)
Quarter: 2010Q4

REPORT INFORMATION
  Report Type: 
  Country: None (occurrence: None)
  Receive Date: 20101008
  Receipt Date: 20100927
  Transmission Date: 20110411
  Serious: Yes (Other)
  Sender: FDA-Public Use
  Company Number: GB-WATSON-2010-11288

PATIENT
  Age: 25 Year
  Sex: Female
  Weight: 53 kg

DRUGS (3)
  1. ALBUTEROL SULFATE AUTOHALER [Suspect]
     Indication: ASTHMA
     Dosage: UNK
     Route: 055
     Dates: end: 20100721
  2. ERGOCALCIFEROL [Suspect]
     Indication: HYPOCALCAEMIA
     Dosage: UNK
     Route: 030
     Dates: start: 20100713, end: 20100901
  3. DICLOFENAC SODIUM [Suspect]
     Indication: ABDOMINAL PAIN
     Dosage: 50 MG, DAILY
     Route: 048
     Dates: start: 20100713, end: 20100718

REACTIONS (1)
  - MELAENA [None]
